FAERS Safety Report 20156519 (Version 1)
Quarter: 2021Q4

REPORT INFORMATION
  Report Type: Spontaneous
  Country: US (occurrence: None)
  Receive Date: 20211207
  Receipt Date: 20211207
  Transmission Date: 20220304
  Serious: Yes (Hospitalization)
  Sender: FDA-Public Use
  Company Number: None

PATIENT
  Age: 69 Year
  Sex: Male

DRUGS (9)
  1. ENBREL [Suspect]
     Active Substance: ETANERCEPT
     Indication: Rheumatoid arthritis
     Dosage: FREQUENCY : WEEKLY;?
     Route: 058
     Dates: start: 20180605
  2. ATORVASTATIN [Concomitant]
  3. ELIQUIS [Suspect]
     Active Substance: APIXABAN
  4. FINASTERIDE [Concomitant]
  5. FOLIC ACID [Concomitant]
  6. ISOSORB MONO [Concomitant]
  7. LEUCOVOR CA [Concomitant]
  8. METHOTREXATE [Concomitant]
  9. METOPROL SUC ER [Concomitant]

REACTIONS (2)
  - Therapy interrupted [None]
  - Cardiac operation [None]

NARRATIVE: CASE EVENT DATE: 20211205
